FAERS Safety Report 10047858 (Version 1)
Quarter: 2014Q1

REPORT INFORMATION
  Report Type: Spontaneous
  Country: IN (occurrence: IN)
  Receive Date: 20140331
  Receipt Date: 20140331
  Transmission Date: 20141002
  Serious: Yes (Death, Hospitalization)
  Sender: FDA-Public Use
  Company Number: IN-CUBIST PHARMACEUTICAL, INC.-2014CBST000470

PATIENT
  Sex: 0

DRUGS (4)
  1. CUBICIN [Suspect]
     Indication: JOINT EFFUSION
     Dosage: UNK UNK, UNK
     Route: 065
  2. CUBICIN [Suspect]
     Indication: OFF LABEL USE
  3. COLISTIN [Concomitant]
     Indication: JOINT EFFUSION
     Dosage: UNK UNK, UNK
     Route: 065
  4. MEROPENEM [Concomitant]
     Indication: JOINT EFFUSION
     Dosage: UNK, UNK
     Route: 065

REACTIONS (1)
  - Sepsis [Fatal]
